FAERS Safety Report 11221548 (Version 3)
Quarter: 2015Q4

REPORT INFORMATION
  Report Type: Report from Study
  Country: US (occurrence: US)
  Receive Date: 20150626
  Receipt Date: 20151222
  Transmission Date: 20160304
  Serious: Yes (Hospitalization, Congenital Anomaly, Other)
  Sender: FDA-Public Use
  Company Number: US-ROCHE-1554372

PATIENT
  Sex: Male
  Weight: 2.27 kg

DRUGS (5)
  1. OMALIZUMAB [Suspect]
     Active Substance: OMALIZUMAB
     Indication: PRODUCT USED FOR UNKNOWN INDICATION
     Route: 064
  2. OMALIZUMAB [Suspect]
     Active Substance: OMALIZUMAB
     Route: 063
  3. DPT [Concomitant]
     Active Substance: DIPHTHERIA AND TETANUS TOXOIDS AND PERTUSSIS VACCINE
  4. M-M-R II [Concomitant]
     Active Substance: MEASLES VIRUS STRAIN ENDERS^ ATTENUATED EDMONSTON LIVE ANTIGEN\MUMPS VIRUS STRAIN B LEVEL JERYL LYNN LIVE ANTIGEN\RUBELLA VIRUS STRAIN WISTAR RA 27/3 LIVE ANTIGEN
  5. HAEMOPHILUS INFLUENZAE [Concomitant]

REACTIONS (9)
  - Feeding disorder [Unknown]
  - Jaundice neonatal [Recovered/Resolved]
  - Constipation [Unknown]
  - Foetal exposure during pregnancy [Unknown]
  - Foetal growth restriction [Unknown]
  - Exposure during breast feeding [Unknown]
  - Neonatal respiratory distress syndrome [Recovered/Resolved]
  - Talipes [Not Recovered/Not Resolved]
  - Penile adhesion [Unknown]

NARRATIVE: CASE EVENT DATE: 20150515
